FAERS Safety Report 8593984-1 (Version None)
Quarter: 2012Q3

REPORT INFORMATION
  Report Type: 
  Country: None (occurrence: None)
  Receive Date: 20120814
  Receipt Date: 20120807
  Transmission Date: 20120928
  Serious: No
  Sender: FDA-Public Use
  Company Number: US-ASTRAZENECA-2010SE40547

PATIENT
  Age: 54 Year
  Sex: Female

DRUGS (1)
  1. CRESTOR [Suspect]
     Route: 048

REACTIONS (5)
  - NASOPHARYNGITIS [None]
  - SINUS DISORDER [None]
  - INTENTIONAL DRUG MISUSE [None]
  - INSOMNIA [None]
  - HEADACHE [None]
